FAERS Safety Report 22215080 (Version 1)
Quarter: 2023Q2

REPORT INFORMATION
  Report Type: Spontaneous
  Country: GB (occurrence: GB)
  Receive Date: 20230415
  Receipt Date: 20230415
  Transmission Date: 20230722
  Serious: Yes (Disabling, Other)
  Sender: FDA-Public Use
  Company Number: None

PATIENT
  Age: 24 Year
  Sex: Female
  Weight: 45 kg

DRUGS (4)
  1. SERTRALINE [Suspect]
     Active Substance: SERTRALINE HYDROCHLORIDE
     Indication: Anxiety
     Dosage: MORNING
     Dates: start: 20230317, end: 20230317
  2. METHYLPHENIDATE HYDROCHLORIDE [Suspect]
     Active Substance: METHYLPHENIDATE HYDROCHLORIDE
     Indication: Attention deficit hyperactivity disorder
     Dosage: MORNING
     Dates: start: 20220603
  3. CALCIUM\VITAMIN D [Concomitant]
     Active Substance: CALCIUM\VITAMIN D
  4. ETHINYL ESTRADIOL\LEVONORGESTREL [Concomitant]
     Active Substance: ETHINYL ESTRADIOL\LEVONORGESTREL
     Indication: Contraception

REACTIONS (18)
  - Medication error [Unknown]
  - Serotonin syndrome [Recovered/Resolved]
  - Hypomania [Recovered/Resolved]
  - Hyperhidrosis [Recovered/Resolved]
  - Restlessness [Recovered/Resolved]
  - Insomnia [Recovered/Resolved]
  - Nausea [Recovered/Resolved]
  - Suicidal ideation [Recovered/Resolved]
  - Anxiety [Recovering/Resolving]
  - Major depression [Recovered/Resolved]
  - Delirium [Recovered/Resolved]
  - Myoclonus [Recovered/Resolved]
  - Tachyphrenia [Recovered/Resolved]
  - Coordination abnormal [Recovered/Resolved]
  - Akathisia [Recovered/Resolved]
  - Tremor [Recovered/Resolved]
  - Agitation [Recovered/Resolved]
  - Headache [Recovered/Resolved]

NARRATIVE: CASE EVENT DATE: 20230317
